FAERS Safety Report 17351819 (Version 3)
Quarter: 2020Q2

REPORT INFORMATION
  Report Type: Spontaneous
  Country: JP (occurrence: JP)
  Receive Date: 20200130
  Receipt Date: 20200624
  Transmission Date: 20200713
  Serious: No
  Sender: FDA-Public Use
  Company Number: JP-BRISTOL-MYERS SQUIBB COMPANY-BMS-2020-007114

PATIENT
  Age: 73 Year
  Sex: Male

DRUGS (2)
  1. ORENCIA [Suspect]
     Active Substance: ABATACEPT
     Indication: RHEUMATOID ARTHRITIS
     Dosage: 125 MILLIGRAM, QWK
     Route: 058
  2. TACROLIMUS MONOHYDRATE [Concomitant]
     Active Substance: TACROLIMUS
     Indication: PRODUCT USED FOR UNKNOWN INDICATION
     Route: 048

REACTIONS (1)
  - Adverse event [Recovered/Resolved]
